FAERS Safety Report 9201558 (Version 1)
Quarter: 2013Q2

REPORT INFORMATION
  Report Type: Spontaneous
  Country: FR (occurrence: FR)
  Receive Date: 20130401
  Receipt Date: 20130401
  Transmission Date: 20140414
  Serious: Yes (Hospitalization, Other)
  Sender: FDA-Public Use
  Company Number: FR-PFIZER INC-2013098516

PATIENT
  Age: 88 Year
  Sex: Male

DRUGS (6)
  1. LYRICA [Suspect]
     Indication: BACK PAIN
     Dosage: 50 MG, 1X/DAY
     Route: 048
     Dates: start: 20120926, end: 20121001
  2. ACTISKENAN [Suspect]
     Indication: BACK PAIN
     Dosage: 5 MG, 2X/DAY
     Route: 048
     Dates: start: 20120926, end: 20121001
  3. HALDOL [Suspect]
     Indication: AGITATION
     Dosage: 5 GTT, 1X/DAY
     Route: 048
     Dates: start: 20120926, end: 20121001
  4. STABLON [Concomitant]
     Dosage: 12.5 MG, 2X/DAY
     Route: 048
     Dates: start: 201012
  5. UN-ALFA [Concomitant]
     Dosage: 0.25 UG, 3X/DAY
     Route: 048
  6. AMLODIPINE [Concomitant]
     Dosage: 2 DF/DAY
     Route: 048

REACTIONS (6)
  - Coma [Recovered/Resolved]
  - Clonus [Recovered/Resolved]
  - Pneumonia bacterial [Unknown]
  - Aggression [Not Recovered/Not Resolved]
  - Agitation [Not Recovered/Not Resolved]
  - Dysphagia [Not Recovered/Not Resolved]
